FAERS Safety Report 8337975-4 (Version None)
Quarter: 2012Q2

REPORT INFORMATION
  Report Type: 
  Country: None (occurrence: None)
  Receive Date: 20120504
  Receipt Date: 20120425
  Transmission Date: 20120825
  Serious: Yes (Hospitalization, Other)
  Sender: FDA-Public Use
  Company Number: US-ASTRAZENECA-2011SE65455

PATIENT
  Age: 86 Year
  Sex: Female
  Weight: 95.7 kg

DRUGS (7)
  1. PRILOSEC [Suspect]
     Route: 048
  2. FISH OIL [Concomitant]
  3. PRILOSEC [Suspect]
     Indication: GASTROOESOPHAGEAL REFLUX DISEASE
     Route: 048
  4. PAIN MEDICATION [Concomitant]
  5. PROTONIX [Concomitant]
  6. NEXIUM [Suspect]
     Indication: GASTROOESOPHAGEAL REFLUX DISEASE
     Route: 048
  7. EYE VITAMIN [Concomitant]

REACTIONS (4)
  - MYOCARDIAL INFARCTION [None]
  - BACK DISORDER [None]
  - CATARACT [None]
  - DRUG EFFECT DECREASED [None]
